FAERS Safety Report 6850595-3 (Version None)
Quarter: 2010Q3

REPORT INFORMATION
  Report Type: 
  Country: None (occurrence: None)
  Receive Date: 20100716
  Receipt Date: 20071015
  Transmission Date: 20110219
  Serious: No
  Sender: FDA-Public Use
  Company Number: US-PFIZER INC-2007087690

PATIENT

DRUGS (2)
  1. CHANTIX [Suspect]
  2. ALCOHOL [Suspect]

REACTIONS (6)
  - ANXIETY [None]
  - FEAR [None]
  - INSOMNIA [None]
  - NAUSEA [None]
  - TACHYPHRENIA [None]
  - THINKING ABNORMAL [None]
